FAERS Safety Report 6199158-6 (Version None)
Quarter: 2009Q2

REPORT INFORMATION
  Report Type: 
  Country: None (occurrence: None)
  Receive Date: 20090522
  Receipt Date: 20090316
  Transmission Date: 20091009
  Serious: No
  Sender: FDA-Public Use
  Company Number: A0769515A

PATIENT
  Age: 69 Year
  Sex: Female
  Weight: 72.7 kg

DRUGS (5)
  1. VERAMYST [Suspect]
     Dosage: 1SPR PER DAY
     Route: 045
     Dates: start: 20090129, end: 20090214
  2. SYNTHROID [Concomitant]
  3. CLIMARA [Concomitant]
  4. VITAMIN [Concomitant]
  5. ASPIRIN [Concomitant]

REACTIONS (9)
  - BACK PAIN [None]
  - FEELING ABNORMAL [None]
  - HEADACHE [None]
  - HYPERHIDROSIS [None]
  - MALAISE [None]
  - NONSPECIFIC REACTION [None]
  - PRESYNCOPE [None]
  - SKIN ULCER [None]
  - VISION BLURRED [None]
